FAERS Safety Report 24953851 (Version 1)
Quarter: 2025Q1

REPORT INFORMATION
  Report Type: Spontaneous
  Country: ES (occurrence: ES)
  Receive Date: 20250211
  Receipt Date: 20250211
  Transmission Date: 20250409
  Serious: Yes (Other)
  Sender: GLAXOSMITHKLINE
  Company Number: None

PATIENT

DRUGS (3)
  1. FLUTICASONE PROPIONATE [Suspect]
     Active Substance: FLUTICASONE PROPIONATE
     Indication: Rhinorrhoea
     Dosage: UNK, QD (1/24 H)
     Route: 065
     Dates: start: 20241112
  2. EBASTINE [Suspect]
     Active Substance: EBASTINE
     Indication: Rhinorrhoea
     Dosage: 20 MG, QOD
     Route: 065
     Dates: start: 20241112
  3. AZELASTINE [Suspect]
     Active Substance: AZELASTINE
     Indication: Rhinorrhoea
     Dosage: UNK UNK, QD (1/24 HOURS)
     Route: 065
     Dates: start: 20241112

REACTIONS (3)
  - Dyspnoea [Recovered/Resolved]
  - Tachycardia [Recovered/Resolved]
  - Paraesthesia [Recovered/Resolved]

NARRATIVE: CASE EVENT DATE: 20241112
